FAERS Safety Report 16692246 (Version 1)
Quarter: 2019Q3

REPORT INFORMATION
  Report Type: Spontaneous
  Country: FR (occurrence: FR)
  Receive Date: 20190812
  Receipt Date: 20190812
  Transmission Date: 20191004
  Serious: Yes (Life-Threatening)
  Sender: FDA-Public Use
  Company Number: FR-MYLANLABS-2019M1074821

PATIENT
  Age: 65 Year
  Sex: Male
  Weight: 120 kg

DRUGS (6)
  1. PIPERACILLIN AND TAZOBACTAM [Suspect]
     Active Substance: PIPERACILLIN SODIUM\TAZOBACTAM SODIUM
     Indication: OSTEITIS
     Dosage: DOSE D?CROISSANTE DE 20 ? 12 G/JOUR
     Route: 042
     Dates: start: 20190123, end: 20190127
  2. GENTAMICINE PANPHARMA [Interacting]
     Active Substance: GENTAMICIN
     Indication: OSTEITIS
     Dosage: 450 MILLIGRAM
     Route: 042
     Dates: start: 20190123, end: 20190123
  3. CUBICIN [Suspect]
     Active Substance: DAPTOMYCIN
     Indication: OSTEITIS
     Dosage: 1200 GRAM
     Route: 042
     Dates: start: 20190123, end: 20190123
  4. VANCOMYCINE SANDOZ [Interacting]
     Active Substance: VANCOMYCIN
     Indication: OSTEITIS
     Dosage: 3 G ET 3 G EN BOLUS
     Route: 042
     Dates: start: 20190123, end: 20190125
  5. AMIKACINE MYLAN [Interacting]
     Active Substance: AMIKACIN
     Indication: OSTEITIS
     Dosage: 3 GRAM
     Route: 042
     Dates: start: 20190123, end: 20190123
  6. IOMERON [Suspect]
     Active Substance: IOMEPROL
     Indication: SCAN WITH CONTRAST
     Dosage: UNK
     Route: 042
     Dates: start: 20190124, end: 20190124

REACTIONS (3)
  - Condition aggravated [Unknown]
  - Drug interaction [Unknown]
  - Acute kidney injury [Not Recovered/Not Resolved]

NARRATIVE: CASE EVENT DATE: 20190125
